FAERS Safety Report 15669188 (Version 1)
Quarter: 2018Q4

REPORT INFORMATION
  Report Type: Spontaneous
  Country: US (occurrence: US)
  Receive Date: 20181129
  Receipt Date: 20181129
  Transmission Date: 20190205
  Serious: No
  Sender: FDA-Public Use
  Company Number: US-TEVA-2018-US-973064

PATIENT
  Age: 69 Year
  Sex: Female

DRUGS (3)
  1. NETHIMAZOLE HERITAGE PHARM [Concomitant]
     Indication: HYPERTHYROIDISM
  2. DIAZEPAM TEVA [Suspect]
     Active Substance: DIAZEPAM
     Indication: DIZZINESS
     Dosage: 15 MILLIGRAM DAILY;
     Route: 065
     Dates: end: 201809
  3. OXYCONTIN [Concomitant]
     Active Substance: OXYCODONE HYDROCHLORIDE
     Indication: PAIN
     Route: 065

REACTIONS (21)
  - Retching [Unknown]
  - Pollakiuria [Unknown]
  - Lip swelling [Unknown]
  - Withdrawal syndrome [Unknown]
  - Chills [Unknown]
  - Pain [Unknown]
  - Hyperhidrosis [Unknown]
  - Musculoskeletal stiffness [Unknown]
  - Heart rate increased [Unknown]
  - Fatigue [Unknown]
  - Nausea [Unknown]
  - Dyspnoea [Unknown]
  - Anxiety [Unknown]
  - Insomnia [Unknown]
  - Heart rate irregular [Unknown]
  - Dizziness [Unknown]
  - Constipation [Unknown]
  - Myalgia [Unknown]
  - Diarrhoea [Unknown]
  - Cold sweat [Unknown]
  - Adverse event [Unknown]

NARRATIVE: CASE EVENT DATE: 2018
